FAERS Safety Report 10656004 (Version 2)
Quarter: 2014Q4

REPORT INFORMATION
  Report Type: Spontaneous
  Country: CN (occurrence: CN)
  Receive Date: 20141216
  Receipt Date: 20141231
  Transmission Date: 20150529
  Serious: Yes (Death, Other)
  Sender: FDA-Public Use
  Company Number: CN-ABBVIE-14P-035-1321740-00

PATIENT
  Age: 66 Year
  Sex: Male
  Weight: 50 kg

DRUGS (4)
  1. PROSTAGLANDIN E1 [Concomitant]
     Active Substance: ALPROSTADIL
     Indication: CARDIOVASCULAR DISORDER
     Route: 041
     Dates: start: 20141119, end: 20141130
  2. LIPANTHYL [Suspect]
     Active Substance: FENOFIBRATE
     Indication: BLOOD TRIGLYCERIDES INCREASED
     Dosage: 800 MG; 200 MG IN THE MORNING AND AT NOON TOOK 0.6 G MISTAKENLY
     Route: 048
     Dates: start: 20141121, end: 20141121
  3. LIPANTHYL [Suspect]
     Active Substance: FENOFIBRATE
     Route: 048
     Dates: start: 20141122
  4. ISOSORBIDE MONONITRATE. [Concomitant]
     Active Substance: ISOSORBIDE MONONITRATE
     Indication: VASODILATION PROCEDURE
     Route: 041
     Dates: start: 20141119, end: 20141130

REACTIONS (6)
  - Thrombotic microangiopathy [Unknown]
  - Pneumonia [Fatal]
  - Overdose [Unknown]
  - Acute kidney injury [Unknown]
  - Cardiac failure acute [Fatal]
  - Tri-iodothyronine decreased [Unknown]

NARRATIVE: CASE EVENT DATE: 2014
